FAERS Safety Report 19411925 (Version 6)
Quarter: 2021Q3

REPORT INFORMATION
  Report Type: Spontaneous
  Country: US (occurrence: US)
  Receive Date: 20210614
  Receipt Date: 20210921
  Transmission Date: 20211014
  Serious: Yes (Other)
  Sender: FDA-Public Use
  Company Number: US-GLAXOSMITHKLINE-US2021AMR124680

PATIENT
  Age: 63 Year
  Sex: Female

DRUGS (4)
  1. ZEJULA [Suspect]
     Active Substance: NIRAPARIB
     Dosage: 100 MG, TID
     Route: 048
     Dates: start: 20210607
  2. ZEJULA [Suspect]
     Active Substance: NIRAPARIB
     Indication: OVARIAN CANCER
     Dosage: 300 MG, QD
     Dates: start: 20210604
  3. ZEJULA [Suspect]
     Active Substance: NIRAPARIB
     Dosage: 300 MG, QD
  4. ZEJULA [Suspect]
     Active Substance: NIRAPARIB
     Dosage: 300 MG, QD

REACTIONS (15)
  - Fatigue [Unknown]
  - Joint swelling [Unknown]
  - Blood pressure increased [Recovered/Resolved]
  - Weight decreased [Unknown]
  - Headache [Not Recovered/Not Resolved]
  - Insomnia [Unknown]
  - Breast conserving surgery [Unknown]
  - Breast operation [Unknown]
  - Biopsy breast [Unknown]
  - Restless legs syndrome [Unknown]
  - Lip discolouration [Unknown]
  - Paraesthesia [Unknown]
  - Neuropathy peripheral [Not Recovered/Not Resolved]
  - Palpitations [Unknown]
  - Hypoaesthesia [Unknown]

NARRATIVE: CASE EVENT DATE: 202106
